FAERS Safety Report 20428120 (Version 2)
Quarter: 2022Q1

REPORT INFORMATION
  Report Type: Spontaneous
  Country: DE (occurrence: DE)
  Receive Date: 20220204
  Receipt Date: 20220214
  Transmission Date: 20220423
  Serious: Yes (Other)
  Sender: FDA-Public Use
  Company Number: DE-AMGEN-DEUSP2022016170

PATIENT
  Age: 88 Year
  Sex: Male
  Weight: 79 kg

DRUGS (5)
  1. REPATHA [Suspect]
     Active Substance: EVOLOCUMAB
     Indication: Type IIa hyperlipidaemia
     Dosage: 140 MILLIGRAM, Q2WK
     Route: 065
     Dates: start: 202001
  2. ASPIRIN [Concomitant]
     Active Substance: ASPIRIN
     Indication: Haemodilution
     Dosage: 100 MILLIGRAM, QD
     Dates: start: 201401
  3. METOPROLOL [Concomitant]
     Active Substance: METOPROLOL
     Indication: Hypertension
     Dosage: UNK, QD
     Dates: start: 201311
  4. COVID-19 VACCINE [Concomitant]
     Dosage: UNK
     Dates: start: 20211123, end: 20211123
  5. COVID-19 VACCINE [Concomitant]
     Dosage: UNK
     Dates: start: 20210313, end: 20210313

REACTIONS (4)
  - Thrombosis [Recovered/Resolved with Sequelae]
  - Peripheral swelling [Recovering/Resolving]
  - Hypoaesthesia [Recovering/Resolving]
  - Arthralgia [Recovering/Resolving]

NARRATIVE: CASE EVENT DATE: 20210501
